FAERS Safety Report 6103466-4 (Version None)
Quarter: 2009Q1

REPORT INFORMATION
  Report Type: 
  Country: None (occurrence: None)
  Receive Date: 20090305
  Receipt Date: 20090223
  Transmission Date: 20090719
  Serious: Yes (Life-Threatening, Other)
  Sender: FDA-Public Use
  Company Number: US-PURDUE-USA_2009_0036788

PATIENT
  Age: 61 Year
  Sex: Male
  Weight: 134 kg

DRUGS (2)
  1. OXYCONTIN [Suspect]
     Indication: BACK PAIN
     Dosage: 10 MG, BID
     Route: 048
  2. VICODIN HP [Concomitant]
     Indication: PAIN
     Dosage: UNK, Q4- 6H PRN
     Route: 048

REACTIONS (2)
  - DYSPNOEA [None]
  - RESPIRATORY FAILURE [None]
